FAERS Safety Report 7505588-X (Version None)
Quarter: 2011Q2

REPORT INFORMATION
  Report Type: 
  Country: None (occurrence: None)
  Receive Date: 20110526
  Receipt Date: 20110520
  Transmission Date: 20111010
  Serious: Yes (Death)
  Sender: FDA-Public Use
  Company Number: JP-PFIZER INC-2011108458

PATIENT

DRUGS (1)
  1. LYRICA [Suspect]

REACTIONS (1)
  - CARDIAC FAILURE [None]
